FAERS Safety Report 20862357 (Version 2)
Quarter: 2022Q2

REPORT INFORMATION
  Report Type: Other
  Country: CA (occurrence: None)
  Receive Date: 20220523
  Receipt Date: 20220602
  Transmission Date: 20220720
  Serious: No
  Sender: FDA-Public Use
  Company Number: CA-ROCHE-2977631

PATIENT
  Age: 41 Year
  Sex: Male

DRUGS (4)
  1. OCREVUS [Suspect]
     Active Substance: OCRELIZUMAB
     Indication: Relapsing-remitting multiple sclerosis
     Dosage: THEN 600 MG EVERY 6 MONTH
     Route: 042
     Dates: start: 20211112
  2. TECFIDERA [Suspect]
     Active Substance: DIMETHYL FUMARATE
     Indication: Product used for unknown indication
     Route: 065
  3. ADVIL [Concomitant]
     Active Substance: IBUPROFEN
  4. CORTISONE [Concomitant]
     Active Substance: CORTISONE

REACTIONS (13)
  - Back pain [Recovered/Resolved]
  - Crying [Not Recovered/Not Resolved]
  - Muscular weakness [Recovering/Resolving]
  - Gait disturbance [Recovering/Resolving]
  - Back pain [Unknown]
  - Influenza [Recovering/Resolving]
  - Fatigue [Unknown]
  - Injection site extravasation [Recovered/Resolved]
  - Peripheral swelling [Unknown]
  - Pain in extremity [Unknown]
  - Fall [Unknown]
  - Alopecia [Unknown]
  - Dental plaque [Unknown]

NARRATIVE: CASE EVENT DATE: 20220531
